FAERS Safety Report 25231421 (Version 1)
Quarter: 2025Q2

REPORT INFORMATION
  Report Type: Spontaneous
  Country: US (occurrence: None)
  Receive Date: 20250423
  Receipt Date: 20250423
  Transmission Date: 20250716
  Serious: No
  Sender: FDA-CTU
  Company Number: None

PATIENT
  Age: 67 Year
  Sex: Male

DRUGS (2)
  1. REVLIMID [Suspect]
     Active Substance: LENALIDOMIDE
     Indication: Plasma cell myeloma
     Dosage: FREQUENCY : DAILY;?
     Route: 048
     Dates: start: 20220325, end: 20250401
  2. PREDNISONE [Suspect]
     Active Substance: PREDNISONE

REACTIONS (2)
  - Peripheral swelling [None]
  - Condition aggravated [None]

NARRATIVE: CASE EVENT DATE: 20250404
